FAERS Safety Report 21022386 (Version 1)
Quarter: 2022Q3

REPORT INFORMATION
  Report Type: Spontaneous
  Country: JP (occurrence: JP)
  Receive Date: 20220629
  Receipt Date: 20220629
  Transmission Date: 20221027
  Serious: Yes (Other)
  Sender: FDA-Public Use
  Company Number: JP-NOVARTISPH-NVSJ2022JP092920

PATIENT

DRUGS (15)
  1. CYCLOSPORINE [Interacting]
     Active Substance: CYCLOSPORINE
     Indication: Vogt-Koyanagi-Harada disease
     Dosage: 3 MG/KG
     Route: 065
  2. PREDNISOLONE [Interacting]
     Active Substance: PREDNISOLONE
     Indication: Vogt-Koyanagi-Harada disease
     Dosage: UNK
     Route: 048
  3. PREDNISOLONE [Interacting]
     Active Substance: PREDNISOLONE
     Dosage: 50 MG
     Route: 048
  4. PREDNISOLONE [Interacting]
     Active Substance: PREDNISOLONE
     Dosage: 40 MG
     Route: 048
  5. PREDNISOLONE [Interacting]
     Active Substance: PREDNISOLONE
     Dosage: 35 MG
     Route: 048
  6. PREDNISOLONE [Interacting]
     Active Substance: PREDNISOLONE
     Dosage: 30 MG
     Route: 048
  7. PREDNISOLONE [Interacting]
     Active Substance: PREDNISOLONE
     Dosage: 25 MG
     Route: 048
  8. PREDNISOLONE [Interacting]
     Active Substance: PREDNISOLONE
     Dosage: 20 MG
     Route: 048
  9. PREDNISOLONE [Interacting]
     Active Substance: PREDNISOLONE
     Dosage: 17.5 MG
     Route: 048
  10. PREDNISOLONE [Interacting]
     Active Substance: PREDNISOLONE
     Dosage: 15 MG
     Route: 048
  11. PREDNISOLONE [Interacting]
     Active Substance: PREDNISOLONE
     Dosage: 12.5 MG
     Route: 048
  12. PREDNISOLONE [Interacting]
     Active Substance: PREDNISOLONE
     Dosage: 10 MG
     Route: 048
  13. PREDNISOLONE [Interacting]
     Active Substance: PREDNISOLONE
     Dosage: 7.5 MG
     Route: 048
  14. PREDNISOLONE [Interacting]
     Active Substance: PREDNISOLONE
     Dosage: 5 MG
     Route: 048
  15. PREDNISOLONE [Interacting]
     Active Substance: PREDNISOLONE
     Dosage: 3 MG
     Route: 048

REACTIONS (2)
  - Hyponatraemia [Recovered/Resolved]
  - Product use in unapproved indication [Unknown]
